FAERS Safety Report 7844995-2 (Version None)
Quarter: 2011Q4

REPORT INFORMATION
  Report Type: 
  Country: None (occurrence: None)
  Receive Date: 20111017
  Receipt Date: 20111004
  Transmission Date: 20120403
  Serious: Yes (Other)
  Sender: FDA-Public Use
  Company Number: US-1188341

PATIENT
  Sex: Male

DRUGS (1)
  1. PREDNISOLONE ACETATE [Suspect]
     Dosage: (OPTHALMIC)
     Route: 047

REACTIONS (1)
  - CUSHING'S SYNDROME [None]
